FAERS Safety Report 16405091 (Version 1)
Quarter: 2019Q2

REPORT INFORMATION
  Report Type: Spontaneous
  Country: US (occurrence: US)
  Receive Date: 20190607
  Receipt Date: 20190607
  Transmission Date: 20190711
  Serious: No
  Sender: FDA-Public Use
  Company Number: US-TEVA-2019-US-1050320

PATIENT
  Age: 61 Year
  Sex: Female

DRUGS (2)
  1. QVAR REDIHALER [Suspect]
     Active Substance: BECLOMETHASONE DIPROPIONATE
     Route: 065
  2. QNASL [Suspect]
     Active Substance: BECLOMETHASONE DIPROPIONATE
     Indication: HYPERSENSITIVITY
     Dosage: QNASL 80MCG, ONE SPRAY IN EACH NOSTRIL ONCE DAILY
     Route: 045

REACTIONS (5)
  - Nasal congestion [Unknown]
  - Product dose omission [Unknown]
  - Feeling abnormal [Unknown]
  - Device issue [Unknown]
  - Hypoacusis [Unknown]

NARRATIVE: CASE EVENT DATE: 201904
